FAERS Safety Report 10634550 (Version 3)
Quarter: 2017Q1

REPORT INFORMATION
  Report Type: Spontaneous
  Country: US (occurrence: US)
  Receive Date: 20141205
  Receipt Date: 20170207
  Transmission Date: 20170428
  Serious: Yes (Other)
  Sender: FDA-Public Use
  Company Number: US-ASTELLAS-2014US017823

PATIENT
  Age: 70 Year
  Sex: Male

DRUGS (1)
  1. XTANDI [Suspect]
     Active Substance: ENZALUTAMIDE
     Indication: HORMONE-REFRACTORY PROSTATE CANCER
     Route: 048
     Dates: end: 20161001

REACTIONS (6)
  - Hot flush [Unknown]
  - Cerebrovascular accident [Recovered/Resolved]
  - Malignant neoplasm progression [Unknown]
  - Fatigue [Unknown]
  - Headache [Unknown]
  - Speech disorder [Recovered/Resolved]

NARRATIVE: CASE EVENT DATE: 201610
